FAERS Safety Report 5199547-2 (Version None)
Quarter: 2006Q4

REPORT INFORMATION
  Report Type: 
  Country: None (occurrence: None)
  Receive Date: 20061229
  Receipt Date: 20061214
  Transmission Date: 20070319
  Serious: Yes (Other)
  Sender: FDA-Public Use
  Company Number: 2006RR-04961

PATIENT
  Sex: Female

DRUGS (1)
  1. FLUOXETINE [Suspect]
     Indication: DEPRESSED MOOD
     Dosage: 20 MG, UNK, ORAL
     Route: 048
     Dates: start: 20060912, end: 20061011

REACTIONS (2)
  - RASH PRURITIC [None]
  - WHEEZING [None]
